FAERS Safety Report 7915033-8 (Version None)
Quarter: 2011Q4

REPORT INFORMATION
  Report Type: 
  Country: None (occurrence: None)
  Receive Date: 20111115
  Receipt Date: 20101221
  Transmission Date: 20120403
  Serious: No
  Sender: FDA-Public Use
  Company Number: US-AMGEN-KDL370782

PATIENT
  Age: 57 Year
  Sex: Male

DRUGS (3)
  1. ENBREL [Suspect]
     Indication: PSORIASIS
     Dosage: 50 MG, QWK
     Route: 058
     Dates: start: 20090922
  2. ENBREL [Suspect]
     Indication: PSORIATIC ARTHROPATHY
     Dosage: 50 MG, QWK
     Dates: start: 20090101
  3. ENBREL [Suspect]
     Dosage: 0.5 ML, QWK
     Route: 058
     Dates: start: 20090823

REACTIONS (7)
  - OROPHARYNGEAL PAIN [None]
  - TOOTH INFECTION [None]
  - FATIGUE [None]
  - COUGH [None]
  - NASAL CONGESTION [None]
  - INSOMNIA [None]
  - PAIN [None]
